FAERS Safety Report 9351484 (Version 1)
Quarter: 2013Q2

REPORT INFORMATION
  Report Type: Spontaneous
  Country: US (occurrence: US)
  Receive Date: 20130617
  Receipt Date: 20130617
  Transmission Date: 20140414
  Serious: No
  Sender: FDA-Public Use
  Company Number: US-009507513-1306USA006794

PATIENT
  Sex: 0
  Weight: 120.18 kg

DRUGS (1)
  1. IMPLANON [Suspect]
     Dosage: 68 MG, 1 ROD
     Route: 059
     Dates: start: 20120828

REACTIONS (4)
  - Device kink [Unknown]
  - Device breakage [Unknown]
  - Product quality issue [Unknown]
  - No adverse event [Unknown]
